FAERS Safety Report 23472204 (Version 2)
Quarter: 2024Q1

REPORT INFORMATION
  Report Type: Spontaneous
  Country: US (occurrence: US)
  Receive Date: 20240202
  Receipt Date: 20240328
  Transmission Date: 20240410
  Serious: Yes (Other)
  Sender: FDA-Public Use
  Company Number: US-BRISTOL-MYERS SQUIBB COMPANY-2024-017354

PATIENT
  Age: 61 Year
  Sex: Female
  Weight: 92.53 kg

DRUGS (1)
  1. REVLIMID [Suspect]
     Active Substance: LENALIDOMIDE
     Indication: Plasma cell myeloma
     Dosage: 2WEEKS ON, 1WEEK OFF
     Route: 048

REACTIONS (4)
  - Atrial fibrillation [Unknown]
  - Alopecia [Unknown]
  - Off label use [Unknown]
  - Blood urine present [Not Recovered/Not Resolved]
